FAERS Safety Report 16863604 (Version 2)
Quarter: 2019Q4

REPORT INFORMATION
  Report Type: Spontaneous
  Country: GB (occurrence: GB)
  Receive Date: 20190927
  Receipt Date: 20191104
  Transmission Date: 20200122
  Serious: Yes (Death, Hospitalization, Other)
  Sender: FDA-Public Use
  Company Number: GB-BAYER-2019-171757

PATIENT
  Age: 59 Year
  Sex: Male
  Weight: 120 kg

DRUGS (6)
  1. NAPROXEN. [Concomitant]
     Active Substance: NAPROXEN
  2. XOFIGO [Suspect]
     Active Substance: RADIUM RA-223 DICHLORIDE
     Indication: PROSTATE CANCER
     Dosage: UNK
     Dates: start: 20190802, end: 20190802
  3. XOFIGO [Suspect]
     Active Substance: RADIUM RA-223 DICHLORIDE
     Indication: METASTASES TO BONE
  4. ENZALUTAMIDE [Concomitant]
     Active Substance: ENZALUTAMIDE
     Dosage: UNK
     Dates: start: 201901, end: 201905
  5. BICALUTAMIDE. [Concomitant]
     Active Substance: BICALUTAMIDE
     Dosage: UNK
     Dates: start: 201809
  6. LUTEINIZING HORMONE-RELEASING HORMONE [Concomitant]
     Active Substance: GONADORELIN
     Dosage: UNK
     Dates: start: 201707

REACTIONS (6)
  - Disseminated intravascular coagulation [None]
  - Gingival swelling [Fatal]
  - Subdural haemorrhage [Fatal]
  - Headache [Fatal]
  - Swollen tongue [Fatal]
  - Vomiting [Fatal]

NARRATIVE: CASE EVENT DATE: 201909
